FAERS Safety Report 9136633 (Version 1)
Quarter: 2013Q1

REPORT INFORMATION
  Report Type: Spontaneous
  Country: US (occurrence: US)
  Receive Date: 20130304
  Receipt Date: 20130304
  Transmission Date: 20140127
  Serious: No
  Sender: FDA-Public Use
  Company Number: US-ABBOTT-12P-163-0932488-00

PATIENT
  Age: 67 None
  Sex: Male
  Weight: 111.23 kg

DRUGS (3)
  1. ANDROGEL 1% [Suspect]
     Indication: BLOOD TESTOSTERONE DECREASED
     Dosage: PACKETS. APPLIES TO SHOULDERS + ABDOMEN
     Dates: start: 201204
  2. VITAMIN D [Concomitant]
     Indication: VITAMIN SUPPLEMENTATION
  3. VITAMIN E [Concomitant]
     Indication: VITAMIN SUPPLEMENTATION

REACTIONS (9)
  - Drug administered at inappropriate site [Recovered/Resolved]
  - Application site pain [Recovered/Resolved]
  - Testicular disorder [Not Recovered/Not Resolved]
  - Ejaculation disorder [Unknown]
  - Penile oedema [Recovered/Resolved]
  - Penile discharge [Not Recovered/Not Resolved]
  - Premature ejaculation [Not Recovered/Not Resolved]
  - Abnormal dreams [Not Recovered/Not Resolved]
  - Spontaneous penile erection [Not Recovered/Not Resolved]
